FAERS Safety Report 24266295 (Version 1)
Quarter: 2024Q3

REPORT INFORMATION
  Report Type: Spontaneous
  Country: US (occurrence: US)
  Receive Date: 20240830
  Receipt Date: 20240830
  Transmission Date: 20241016
  Serious: Yes (Hospitalization)
  Sender: SANDOZ
  Company Number: US-MLMSERVICE-20240722-PI139056-00082-1

PATIENT
  Age: 62 Year
  Sex: Female

DRUGS (10)
  1. CARBOPLATIN [Suspect]
     Active Substance: CARBOPLATIN
     Indication: Metastases to muscle
     Dosage: 1110.000MG
     Route: 065
  2. CARBOPLATIN [Suspect]
     Active Substance: CARBOPLATIN
     Indication: Nephroblastoma
     Dosage: REDUCED BY 20 % FOR CYCLES 4 AND 5 AND BY 50 % FOR CYCLE 6
     Route: 065
  3. CYCLOPHOSPHAMIDE [Suspect]
     Active Substance: CYCLOPHOSPHAMIDE
     Indication: Metastases to muscle
     Dosage: 1200.000MG/M2
     Route: 065
  4. CYCLOPHOSPHAMIDE [Suspect]
     Active Substance: CYCLOPHOSPHAMIDE
     Indication: Nephroblastoma
     Dosage: REDUCED BY 20 % FOR CYCLES 4 AND 5 AND BY 50 % FOR CYCLE 6
     Route: 065
  5. ETOPOSIDE [Suspect]
     Active Substance: ETOPOSIDE
     Indication: Nephroblastoma
     Dosage: 225.000MG/M2
     Route: 065
  6. ETOPOSIDE [Suspect]
     Active Substance: ETOPOSIDE
     Indication: Metastases to muscle
     Dosage: REDUCED BY 20 % FOR CYCLES 4 AND 5 AND BY 50 % FOR CYCLE 6
     Route: 065
  7. IFOSFAMIDE [Suspect]
     Active Substance: IFOSFAMIDE
     Indication: Nephroblastoma
     Dosage: 5400.000MG/M2
     Route: 065
  8. IFOSFAMIDE [Suspect]
     Active Substance: IFOSFAMIDE
     Indication: Metastases to muscle
     Dosage: REDUCED BY 20 % FOR CYCLES 4 AND 5 AND BY 50 % FOR CYCLE 6
     Route: 065
  9. TOPOTECAN [Suspect]
     Active Substance: TOPOTECAN HYDROCHLORIDE
     Indication: Nephroblastoma
     Dosage: 3.600MG/M2
     Route: 065
  10. TOPOTECAN [Suspect]
     Active Substance: TOPOTECAN HYDROCHLORIDE
     Indication: Metastases to muscle
     Dosage: REDUCED BY 20 % FOR CYCLES 4 AND 5 AND BY 50 % FOR CYCLE 6
     Route: 065

REACTIONS (3)
  - Neutropenia [Unknown]
  - Visual impairment [Unknown]
  - Nausea [Unknown]
